FAERS Safety Report 15856861 (Version 1)
Quarter: 2019Q1

REPORT INFORMATION
  Report Type: Spontaneous
  Country: US (occurrence: US)
  Receive Date: 20190122
  Receipt Date: 20190122
  Transmission Date: 20190417
  Serious: Yes (Other)
  Sender: FDA-Public Use
  Company Number: None

PATIENT
  Age: 66 Year
  Sex: Female
  Weight: 53.8 kg

DRUGS (1)
  1. RITUXAN [Suspect]
     Active Substance: RITUXIMAB
     Indication: SJOGREN^S SYNDROME
     Dosage: ?          OTHER FREQUENCY:EVERY 2 WEEKS;?
     Route: 041
     Dates: start: 20190104, end: 20190104

REACTIONS (1)
  - Pharyngeal oedema [None]

NARRATIVE: CASE EVENT DATE: 20190104
